FAERS Safety Report 6363986-4 (Version None)
Quarter: 2009Q3

REPORT INFORMATION
  Report Type: 
  Country: None (occurrence: None)
  Receive Date: 20090919
  Receipt Date: 20090710
  Transmission Date: 20100115
  Serious: No
  Sender: FDA-Public Use
  Company Number: US-ABBOTT-09P-163-0585136-00

PATIENT
  Sex: Female
  Weight: 118.04 kg

DRUGS (5)
  1. HUMIRA [Suspect]
     Indication: PSORIASIS
     Dates: start: 20090301
  2. HUMIRA [Suspect]
  3. TOPAMAX [Concomitant]
     Indication: MIGRAINE
  4. IMITREX [Concomitant]
     Indication: MIGRAINE
  5. IMPLANON [Concomitant]
     Indication: CONTRACEPTION

REACTIONS (1)
  - DRUG DOSE OMISSION [None]
